FAERS Safety Report 24629136 (Version 1)
Quarter: 2024Q4

REPORT INFORMATION
  Report Type: Spontaneous
  Country: US (occurrence: US)
  Receive Date: 20241118
  Receipt Date: 20241118
  Transmission Date: 20250115
  Serious: No
  Sender: ARCUTIS
  Company Number: US-ARCUTIS BIOTHERAPEUTICS INC-2024AER000302

PATIENT
  Sex: Male

DRUGS (3)
  1. ZORYVE [Suspect]
     Active Substance: ROFLUMILAST
     Indication: Psoriasis
     Dosage: UNK
     Route: 061
     Dates: start: 20240908, end: 20240910
  2. ZORYVE [Suspect]
     Active Substance: ROFLUMILAST
     Indication: Psoriasis
     Dosage: UNK
     Route: 061
     Dates: start: 20240908, end: 20240910
  3. ZORYVE [Suspect]
     Active Substance: ROFLUMILAST
     Dosage: UNK
     Dates: start: 20240908, end: 20240910

REACTIONS (3)
  - Conjunctivitis [Unknown]
  - Eye irritation [Unknown]
  - Off label use [Unknown]

NARRATIVE: CASE EVENT DATE: 20240908
